FAERS Safety Report 7915254 (Version 4)
Quarter: 2017Q3

REPORT INFORMATION
  Report Type: Report from Study
  Country: JP (occurrence: JP)
  Receive Date: 20110426
  Receipt Date: 20170928
  Transmission Date: 20171128
  Serious: Yes (Death, Other)
  Sender: FDA-Public Use
  Company Number: PHHY2010JP61711

PATIENT
  Age: 69 Year
  Sex: Male
  Weight: 53 kg

DRUGS (11)
  1. AFINITOR [Suspect]
     Active Substance: EVEROLIMUS
     Indication: RENAL CELL CARCINOMA
  2. LOXONIN [Concomitant]
     Active Substance: LOXOPROFEN SODIUM
     Indication: METASTATIC RENAL CELL CARCINOMA
     Dosage: 60 MG, UNK
     Route: 048
     Dates: start: 20100520, end: 20100915
  3. SUMIFERON [Concomitant]
     Active Substance: INTERFERON ALFA-N1
     Dosage: 5000000 IU, UNK
     Route: 065
     Dates: end: 20080226
  4. DECADRON [Suspect]
     Active Substance: DEXAMETHASONE
     Indication: METASTATIC RENAL CELL CARCINOMA
     Dosage: 1.5 MG, UNK
     Route: 048
     Dates: start: 20100525, end: 20100831
  5. MUCODYNE [Concomitant]
     Active Substance: CARBOCYSTEINE
     Indication: METASTATIC RENAL CELL CARCINOMA
     Dosage: 1500 MG, UNK
     Route: 048
  6. TRANSAMIN [Concomitant]
     Active Substance: TRANEXAMIC ACID
     Indication: METASTATIC RENAL CELL CARCINOMA
     Dosage: 1500 MG, UNK
     Route: 048
     Dates: start: 20100520, end: 20100622
  7. AFINITOR [Suspect]
     Active Substance: EVEROLIMUS
     Indication: METASTATIC RENAL CELL CARCINOMA
     Dosage: 10 MG, QD
     Route: 048
     Dates: start: 20100520, end: 20100723
  8. SUMIFERON [Concomitant]
     Active Substance: INTERFERON ALFA-N1
     Indication: METASTATIC RENAL CELL CARCINOMA
     Dosage: 3000000 IU, UNK
     Route: 065
     Dates: start: 20060629, end: 20080226
  9. SUNITINIB MALATE. [Concomitant]
     Active Substance: SUNITINIB MALATE
     Indication: METASTATIC RENAL CELL CARCINOMA
     Dosage: 37.5 MG, UNK
     Route: 048
     Dates: start: 20091022, end: 20100503
  10. NEXAVAR [Concomitant]
     Active Substance: SORAFENIB
     Indication: METASTATIC RENAL CELL CARCINOMA
     Dosage: 400 MG, UNK
     Route: 048
     Dates: start: 20080624, end: 20091018
  11. DAIKENTYUTO [Concomitant]
     Active Substance: HERBALS
     Indication: METASTATIC RENAL CELL CARCINOMA
     Dosage: 7.5 MG, UNK
     Route: 048
     Dates: start: 20100520, end: 20100915

REACTIONS (8)
  - Interstitial lung disease [Recovering/Resolving]
  - Hyperglycaemia [Not Recovered/Not Resolved]
  - Gait inability [Unknown]
  - Meningitis [Fatal]
  - Herpes zoster [Recovered/Resolved]
  - Pyrexia [Recovering/Resolving]
  - Malignant neoplasm progression [Fatal]
  - Lymphocyte count decreased [Unknown]

NARRATIVE: CASE EVENT DATE: 20100713
